FAERS Safety Report 7769426-2 (Version None)
Quarter: 2011Q3

REPORT INFORMATION
  Report Type: 
  Country: None (occurrence: None)
  Receive Date: 20110922
  Receipt Date: 20110204
  Transmission Date: 20111222
  Serious: No
  Sender: FDA-Public Use
  Company Number: US-ASTRAZENECA-2011SE06892

PATIENT
  Age: 52 Year

DRUGS (1)
  1. SEROQUEL [Suspect]
     Route: 048
     Dates: start: 20040101

REACTIONS (4)
  - CORRECTIVE LENS USER [None]
  - DRUG DOSE OMISSION [None]
  - SELF INJURIOUS BEHAVIOUR [None]
  - IMPRISONMENT [None]
